FAERS Safety Report 20081972 (Version 1)
Quarter: 2021Q4

REPORT INFORMATION
  Report Type: Spontaneous
  Country: CN (occurrence: CN)
  Receive Date: 20211117
  Receipt Date: 20211117
  Transmission Date: 20220303
  Serious: Yes (Hospitalization)
  Sender: FDA-Public Use
  Company Number: CN-PFIZER INC-202101513515

PATIENT
  Age: 87 Year
  Sex: Female
  Weight: 45 kg

DRUGS (7)
  1. LIPITOR [Suspect]
     Active Substance: ATORVASTATIN CALCIUM
     Indication: Lipids abnormal
     Dosage: 20 MG, 1X/DAY
     Route: 048
     Dates: start: 20210401, end: 20211008
  2. METOPROLOL SUCCINATE [Suspect]
     Active Substance: METOPROLOL SUCCINATE
     Indication: Coronary artery disease
     Dosage: 47.5 MG, 1X/DAY
     Route: 048
     Dates: start: 20210401, end: 20211008
  3. BENZBROMARONE [Suspect]
     Active Substance: BENZBROMARONE
     Indication: Hyperuricaemia
     Dosage: 50 MG, 1X/DAY
     Route: 048
     Dates: start: 20210709, end: 20210723
  4. ASPIRIN [Suspect]
     Active Substance: ASPIRIN
     Indication: Coronary artery disease
     Dosage: 100 MG, 1X/DAY
     Route: 048
     Dates: start: 20210401, end: 2021
  5. ASPIRIN [Suspect]
     Active Substance: ASPIRIN
     Indication: Cerebral infarction
     Dosage: 100 MG, 1X/DAY
     Route: 048
     Dates: start: 2021, end: 20211008
  6. ISOSORBIDE MONONITRATE [Suspect]
     Active Substance: ISOSORBIDE MONONITRATE
     Indication: Coronary artery disease
     Dosage: 20 MG, 2X/DAY
     Route: 048
     Dates: start: 20210401, end: 20211008
  7. CLOPIDOGREL [Concomitant]
     Active Substance: CLOPIDOGREL BISULFATE
     Dosage: UNK
     Dates: start: 2021, end: 2021

REACTIONS (1)
  - Epidermolysis bullosa [Recovering/Resolving]

NARRATIVE: CASE EVENT DATE: 20210901
